FAERS Safety Report 9808940 (Version 1)
Quarter: 2014Q1

REPORT INFORMATION
  Report Type: Spontaneous
  Country: JP (occurrence: JP)
  Receive Date: 20140110
  Receipt Date: 20140110
  Transmission Date: 20141002
  Serious: Yes (Other)
  Sender: FDA-Public Use
  Company Number: JP-PFIZER INC-2014003542

PATIENT
  Age: 6 Decade
  Sex: Male

DRUGS (24)
  1. LYRICA [Suspect]
     Dosage: 75 MG, 2X/DAY
     Route: 048
     Dates: start: 20110428, end: 20110502
  2. ROHYPNOL [Concomitant]
  3. DEPROMEL [Concomitant]
  4. MYSLEE [Concomitant]
  5. DEPAS [Concomitant]
  6. MEXITIL [Concomitant]
  7. ARTIST [Concomitant]
  8. URSO [Concomitant]
  9. OMEPRAZOLE [Concomitant]
  10. CILOSTAZOL [Concomitant]
  11. DIART [Concomitant]
  12. NEUROVITAN [Concomitant]
  13. BAYASPIRIN [Concomitant]
  14. PANCREL [Concomitant]
  15. PRORNER [Concomitant]
  16. BEZAFIBRATE [Concomitant]
  17. BERIZYM [Concomitant]
  18. MECOBALAMIN [Concomitant]
  19. NOVORAPID [Concomitant]
  20. LEVEMIR [Concomitant]
  21. LAC B [Concomitant]
  22. YOKUKAN-SAN [Concomitant]
  23. RIKKUNSHINTO [Concomitant]
  24. SHAKUYAKUKANZOUTOU [Concomitant]

REACTIONS (8)
  - Oedema peripheral [Recovering/Resolving]
  - Scrotal oedema [Recovered/Resolved]
  - Penile oedema [Recovering/Resolving]
  - Tenosynovitis [Recovering/Resolving]
  - Arthralgia [Recovering/Resolving]
  - Pain in extremity [Recovering/Resolving]
  - Blister [Recovering/Resolving]
  - Dizziness [Recovered/Resolved]
